FAERS Safety Report 5390636-6 (Version None)
Quarter: 2007Q3

REPORT INFORMATION
  Report Type: 
  Country: None (occurrence: None)
  Receive Date: 20070712
  Receipt Date: 20070515
  Transmission Date: 20080115
  Serious: Yes (Hospitalization)
  Sender: FDA-Public Use
  Company Number: 6033519

PATIENT
  Sex: Male

DRUGS (2)
  1. ENALAPRIL MALEATE [Suspect]
     Indication: HYPERTENSION
     Dosage: 20 MG (20 MG, 1 IN 1 D); DOSE REDUCED 1.5 YEARS BEFORE CURRENT ADMISSION
     Route: 048
  2. GLYCYRRHIZIN [Suspect]
     Indication: CONSTIPATION

REACTIONS (9)
  - ACCIDENTAL OVERDOSE [None]
  - CONDITION AGGRAVATED [None]
  - CONSTIPATION [None]
  - DRUG INTERACTION [None]
  - HYPERTENSION [None]
  - HYPOKALAEMIA [None]
  - METABOLIC ALKALOSIS [None]
  - MUSCULAR WEAKNESS [None]
  - PSEUDOALDOSTERONISM [None]
